FAERS Safety Report 11414694 (Version 1)
Quarter: 2015Q3

REPORT INFORMATION
  Report Type: Spontaneous
  Country: US (occurrence: None)
  Receive Date: 20150821
  Receipt Date: 20150821
  Transmission Date: 20151125
  Serious: Yes (Hospitalization)
  Sender: FDA-Public Use
  Company Number: 2015SMT00254

PATIENT
  Age: 60 Year
  Sex: Male
  Weight: 98.4 kg

DRUGS (5)
  1. OXYCODONE [Concomitant]
     Active Substance: OXYCODONE
  2. GABAPENTIN. [Concomitant]
     Active Substance: GABAPENTIN
  3. JANUMET (METFORMIN HYDROCHLORIDE;SITAGLIPTIN PHOSPHATE) [Concomitant]
  4. LYRICA [Concomitant]
     Active Substance: PREGABALIN
  5. REGRANEX [Suspect]
     Active Substance: BECAPLERMIN
     Indication: WOUND
     Dosage: UNK UNK, 1X/DAY, TOPICAL
     Route: 061
     Dates: start: 201507, end: 201507

REACTIONS (3)
  - Wound secretion [None]
  - Infection [None]
  - Wound complication [None]

NARRATIVE: CASE EVENT DATE: 2015
